FAERS Safety Report 8225880-3 (Version None)
Quarter: 2012Q1

REPORT INFORMATION
  Report Type: 
  Country: None (occurrence: None)
  Receive Date: 20120321
  Receipt Date: 20120308
  Transmission Date: 20120608
  Serious: Yes (Other)
  Sender: FDA-Public Use
  Company Number: US-ROCHE-791144

PATIENT
  Sex: Male
  Weight: 106.69 kg

DRUGS (1)
  1. ACCUTANE [Suspect]
     Indication: ACNE CYSTIC
     Dosage: DOSE: 80 MG IN MORNING AND 40 MG IN EVENING
     Route: 065
     Dates: start: 20031231, end: 20040101

REACTIONS (6)
  - IRRITABLE BOWEL SYNDROME [None]
  - COLON INJURY [None]
  - LIP DRY [None]
  - COLITIS ULCERATIVE [None]
  - INFLAMMATORY BOWEL DISEASE [None]
  - DEPRESSION [None]
